FAERS Safety Report 24247307 (Version 4)
Quarter: 2025Q2

REPORT INFORMATION
  Report Type: Report from Study
  Country: GB (occurrence: GB)
  Receive Date: 20240826
  Receipt Date: 20250527
  Transmission Date: 20250716
  Serious: Yes (Hospitalization, Other)
  Sender: SANDOZ
  Company Number: GB-002147023-NVSC2020GB238718

PATIENT
  Age: 62 Year
  Sex: Female

DRUGS (2)
  1. OMNITROPE [Suspect]
     Active Substance: SOMATROPIN
     Dosage: 0.50 MG, QD
     Route: 058
  2. OMNITROPE [Suspect]
     Active Substance: SOMATROPIN
     Indication: Growth hormone deficiency
     Dosage: 0.6 MG, QD (04 OCT 2016)
     Route: 058

REACTIONS (5)
  - Cerebrovascular accident [Unknown]
  - Urinary tract infection [Unknown]
  - Cerebrovascular accident [Unknown]
  - Language disorder [Unknown]
  - Product dose omission issue [Unknown]

NARRATIVE: CASE EVENT DATE: 20200823
